FAERS Safety Report 4688859-4 (Version None)
Quarter: 2005Q2

REPORT INFORMATION
  Report Type: 
  Country: None (occurrence: None)
  Receive Date: 20050613
  Receipt Date: 20050214
  Transmission Date: 20051028
  Serious: Yes (Death, Life-Threatening, Hospitalization)
  Sender: FDA-Public Use
  Company Number: PHHO2005DE02638

PATIENT
  Age: 75 Year
  Sex: Female
  Weight: 69 kg

DRUGS (3)
  1. GLEEVEC [Suspect]
     Indication: PANCREATIC CARCINOMA
     Dosage: 500 MG, QD
     Route: 048
     Dates: start: 20050128, end: 20050204
  2. FLUOROURACIL [Suspect]
     Indication: PANCREATIC CARCINOMA
     Dosage: 3500MG/DAY
     Route: 042
     Dates: start: 20050201, end: 20050202
  3. LEUCOVORIN CALCIUM [Concomitant]
     Indication: PANCREATIC CARCINOMA
     Dosage: 350MG/DAY
     Route: 042
     Dates: start: 20050201, end: 20050202

REACTIONS (7)
  - CHILLS [None]
  - DYSPHAGIA [None]
  - MUCOSAL INFLAMMATION [None]
  - NEUTROPENIA [None]
  - PNEUMONIA [None]
  - PYREXIA [None]
  - SEPSIS [None]
